FAERS Safety Report 23295460 (Version 1)
Quarter: 2023Q4

REPORT INFORMATION
  Report Type: Other
  Country: GB (occurrence: None)
  Receive Date: 20231214
  Receipt Date: 20231214
  Transmission Date: 20240110
  Serious: Yes (Other)
  Sender: FDA-Public Use
  Company Number: GB-ROCHE-3473414

PATIENT

DRUGS (1)
  1. PRALSETINIB [Suspect]
     Active Substance: PRALSETINIB
     Indication: Medullary thyroid cancer
     Route: 065

REACTIONS (6)
  - Pulmonary embolism [Unknown]
  - Hypertension [Unknown]
  - Infection [Unknown]
  - Fatigue [Unknown]
  - Neutropenia [Unknown]
  - Pneumonitis [Unknown]
